FAERS Safety Report 4467657-0 (Version None)
Quarter: 2004Q4

REPORT INFORMATION
  Report Type: 
  Country: None (occurrence: None)
  Receive Date: 20041004
  Receipt Date: 20041004
  Transmission Date: 20050328
  Serious: Yes (Death)
  Sender: FDA-Public Use
  Company Number: None

PATIENT
  Age: 63 Year
  Sex: Male
  Weight: 97.5234 kg

DRUGS (3)
  1. VIOXX [Suspect]
     Indication: ARTHRITIS
     Dosage: DAILY ORAL
     Route: 048
     Dates: start: 19991209, end: 20001209
  2. VIOXX [Suspect]
     Indication: GOUT
     Dosage: DAILY ORAL
     Route: 048
     Dates: start: 19991209, end: 20001209
  3. HYPERTENSION MEDICATION [Concomitant]

REACTIONS (2)
  - MYOCARDIAL INFARCTION [None]
  - SUDDEN DEATH [None]
